FAERS Safety Report 10732690 (Version 2)
Quarter: 2015Q1

REPORT INFORMATION
  Report Type: Spontaneous
  Country: US (occurrence: None)
  Receive Date: 20150120
  Receipt Date: 20150218
  Transmission Date: 20150721
  Serious: Yes (Disabling, Other)
  Sender: FDA-Public Use
  Company Number: 2015COV00006

PATIENT
  Sex: Female

DRUGS (3)
  1. PLAQUENIL [Suspect]
     Active Substance: HYDROXYCHLOROQUINE SULFATE
     Indication: RHEUMATOID ARTHRITIS
  2. HUMIRA [Suspect]
     Active Substance: ADALIMUMAB
  3. VICODIN [Suspect]
     Active Substance: ACETAMINOPHEN\HYDROCODONE BITARTRATE

REACTIONS (23)
  - Intervertebral disc degeneration [None]
  - Seizure [None]
  - Fibromyalgia [None]
  - Refusal of treatment by patient [None]
  - Loss of consciousness [None]
  - Meningitis [None]
  - Peripheral swelling [None]
  - Vision blurred [None]
  - Pharyngitis streptococcal [None]
  - Blindness unilateral [None]
  - Syncope [None]
  - Pharyngeal oedema [None]
  - Asthma [None]
  - Dyspnoea [None]
  - Dysuria [None]
  - Transient ischaemic attack [None]
  - Benign intracranial hypertension [None]
  - Drug ineffective [None]
  - Arthropathy [None]
  - Kidney infection [None]
  - Hypertension [None]
  - Migraine [None]
  - Sepsis [None]

NARRATIVE: CASE EVENT DATE: 2007
